FAERS Safety Report 5357761-7 (Version None)
Quarter: 2007Q2

REPORT INFORMATION
  Report Type: 
  Country: None (occurrence: None)
  Receive Date: 20070530
  Receipt Date: 20070329
  Transmission Date: 20071010
  Serious: Yes (Other)
  Sender: FDA-Public Use
  Company Number: US200703006594

PATIENT
  Sex: Male

DRUGS (1)
  1. ZYPREXA [Suspect]

REACTIONS (1)
  - PANCREATITIS [None]
